FAERS Safety Report 17325476 (Version 1)
Quarter: 2020Q1

REPORT INFORMATION
  Report Type: Spontaneous
  Country: US (occurrence: US)
  Receive Date: 20200127
  Receipt Date: 20200127
  Transmission Date: 20200409
  Serious: No
  Sender: FDA-Public Use
  Company Number: US-REGENERON PHARMACEUTICALS, INC.-2018-47107

PATIENT

DRUGS (1)
  1. EYLEA [Suspect]
     Active Substance: AFLIBERCEPT
     Indication: PRODUCT USED FOR UNKNOWN INDICATION
     Dosage: UNK
     Dates: start: 20181129

REACTIONS (4)
  - Eye pain [Unknown]
  - Vision blurred [Recovering/Resolving]
  - Ocular hyperaemia [Unknown]
  - Eye contusion [Recovered/Resolved]

NARRATIVE: CASE EVENT DATE: 20181129
